FAERS Safety Report 9502849 (Version 2)
Quarter: 2013Q4

REPORT INFORMATION
  Report Type: Spontaneous
  Country: US (occurrence: US)
  Receive Date: 20130906
  Receipt Date: 20131016
  Transmission Date: 20140711
  Serious: Yes (Other)
  Sender: FDA-Public Use
  Company Number: US-AMGEN-USASP2013061596

PATIENT
  Age: 57 Year
  Sex: Female

DRUGS (1)
  1. ENBREL [Suspect]
     Indication: RHEUMATOID ARTHRITIS
     Dosage: 50 MG, QWK
     Route: 065
     Dates: start: 20080101

REACTIONS (24)
  - Nasopharyngitis [Recovered/Resolved]
  - Gingivitis [Recovered/Resolved]
  - Injection site pain [Not Recovered/Not Resolved]
  - Injection site reaction [Not Recovered/Not Resolved]
  - Pulmonary fibrosis [Not Recovered/Not Resolved]
  - Hand deformity [Not Recovered/Not Resolved]
  - Intervertebral disc disorder [Not Recovered/Not Resolved]
  - Deafness [Not Recovered/Not Resolved]
  - Arthropathy [Not Recovered/Not Resolved]
  - Joint swelling [Not Recovered/Not Resolved]
  - Joint range of motion decreased [Not Recovered/Not Resolved]
  - Condition aggravated [Not Recovered/Not Resolved]
  - Gingivitis [Recovered/Resolved]
  - Osteoporosis [Not Recovered/Not Resolved]
  - Tooth loss [Recovered/Resolved]
  - Bone cyst [Not Recovered/Not Resolved]
  - Dental discomfort [Recovered/Resolved]
  - Vertigo [Not Recovered/Not Resolved]
  - Anger [Unknown]
  - Pain in extremity [Not Recovered/Not Resolved]
  - Overweight [Not Recovered/Not Resolved]
  - Hypermetropia [Not Recovered/Not Resolved]
  - Scoliosis [Not Recovered/Not Resolved]
  - Bronchitis [Recovered/Resolved]
